FAERS Safety Report 7042295-4 (Version None)
Quarter: 2010Q4

REPORT INFORMATION
  Report Type: 
  Country: None (occurrence: None)
  Receive Date: 20101013
  Receipt Date: 20090903
  Transmission Date: 20110411
  Serious: No
  Sender: FDA-Public Use
  Company Number: US-ASTRAZENECA-2009SE07079

PATIENT
  Age: 83 Year
  Sex: Female
  Weight: 57.6 kg

DRUGS (5)
  1. SYMBICORT [Suspect]
     Indication: CHRONIC OBSTRUCTIVE PULMONARY DISEASE
     Dosage: 320/9 UG BID
     Route: 055
  2. AMBIEN [Concomitant]
     Indication: SLEEP DISORDER
  3. COMBIVENT [Concomitant]
  4. SPIRIVA [Concomitant]
  5. ATROVENT [Concomitant]

REACTIONS (2)
  - DYSPNOEA [None]
  - INCORRECT ROUTE OF DRUG ADMINISTRATION [None]
